FAERS Safety Report 7721748-7 (Version None)
Quarter: 2011Q3

REPORT INFORMATION
  Report Type: 
  Country: None (occurrence: None)
  Receive Date: 20110831
  Receipt Date: 20110819
  Transmission Date: 20111222
  Serious: Yes (Other)
  Sender: FDA-Public Use
  Company Number: US-PFIZER INC-2011189436

PATIENT
  Sex: Female
  Weight: 67 kg

DRUGS (7)
  1. METHOTREXATE [Concomitant]
     Dosage: UNK
  2. ENBREL [Suspect]
     Indication: RHEUMATOID ARTHRITIS
     Dosage: 50 MG, QWK
     Dates: start: 20110303
  3. HYDROCODONE [Concomitant]
     Dosage: UNK
  4. FOLIC ACID [Concomitant]
     Dosage: UNK
  5. IBUPROFEN [Suspect]
     Dosage: UNK
  6. OMEPRAZOLE [Concomitant]
     Dosage: UNK
  7. NAPROXEN [Suspect]
     Dosage: UNK

REACTIONS (9)
  - INJECTION SITE HAEMATOMA [None]
  - NAUSEA [None]
  - CONTUSION [None]
  - FATIGUE [None]
  - ALOPECIA [None]
  - INJECTION SITE PAIN [None]
  - HAEMORRHAGE [None]
  - DIARRHOEA [None]
  - HYPOTHYROIDISM [None]
